FAERS Safety Report 9324878 (Version 6)
Quarter: 2013Q3

REPORT INFORMATION
  Report Type: Report from Study
  Country: US (occurrence: US)
  Receive Date: 20130603
  Receipt Date: 20130730
  Transmission Date: 20140515
  Serious: Yes (Death, Hospitalization)
  Sender: FDA-Public Use
  Company Number: US-ACTELION-A-US2013-83217

PATIENT
  Age: 49 Year
  Sex: Male

DRUGS (4)
  1. VENTAVIS [Suspect]
     Indication: PULMONARY ARTERIAL HYPERTENSION
     Dosage: 6 TIMES A DAY
     Route: 055
     Dates: start: 20130503, end: 20130725
  2. TRACLEER [Suspect]
     Indication: PULMONARY ARTERIAL HYPERTENSION
     Dosage: 62.5 MG, PER MIN
     Route: 048
     Dates: start: 20121123, end: 20121220
  3. TRACLEER [Suspect]
     Dosage: 125 MG, UNK
     Route: 048
     Dates: start: 20121221, end: 20130725
  4. ADCIRCA [Concomitant]

REACTIONS (13)
  - Death [Fatal]
  - Streptococcal bacteraemia [Unknown]
  - Blood disorder [Unknown]
  - Renal failure [Unknown]
  - Hypotension [Unknown]
  - Fluid retention [Unknown]
  - Cardiac infection [Unknown]
  - Vision blurred [Recovering/Resolving]
  - Dizziness [Recovered/Resolved]
  - Headache [Recovered/Resolved]
  - Cough [Unknown]
  - Sinus disorder [Unknown]
  - Oedema [Unknown]
